FAERS Safety Report 21967017 (Version 1)
Quarter: 2023Q1

REPORT INFORMATION
  Report Type: Spontaneous
  Country: US (occurrence: None)
  Receive Date: 20230206
  Receipt Date: 20230206
  Transmission Date: 20230418
  Serious: Yes (Other)
  Sender: FDA-Public Use
  Company Number: None

PATIENT
  Age: 60 Year
  Sex: Female
  Weight: 105.75 kg

DRUGS (5)
  1. EVENITY [Suspect]
     Active Substance: ROMOSOZUMAB-AQQG
     Indication: Osteoporosis
     Dosage: OTHER FREQUENCY : ONCE MONTLY;?
     Route: 058
     Dates: start: 20230102, end: 20230202
  2. SYNTHROID [Concomitant]
     Active Substance: LEVOTHYROXINE SODIUM
  3. HYDROCHLORITHIZIDE [Concomitant]
  4. VITAMIN D3 [Concomitant]
     Active Substance: CHOLECALCIFEROL
  5. SELENIUM [Concomitant]
     Active Substance: SELENIUM

REACTIONS (6)
  - Headache [None]
  - Arthralgia [None]
  - Neck pain [None]
  - Chills [None]
  - Impaired work ability [None]
  - Sleep disorder [None]

NARRATIVE: CASE EVENT DATE: 20230205
